FAERS Safety Report 5799267-7 (Version None)
Quarter: 2008Q3

REPORT INFORMATION
  Report Type: 
  Country: None (occurrence: None)
  Receive Date: 20080702
  Receipt Date: 20080623
  Transmission Date: 20090109
  Serious: Yes (Other)
  Sender: FDA-Public Use
  Company Number: JP-PFIZER INC-2008048902

PATIENT
  Age: 55 Year
  Sex: Male

DRUGS (1)
  1. CHANTIX [Suspect]
     Indication: SMOKING CESSATION THERAPY
     Route: 048
     Dates: start: 20080518, end: 20080522

REACTIONS (4)
  - DISTURBANCE IN ATTENTION [None]
  - DRUG DOSE OMISSION [None]
  - MALAISE [None]
  - SOMNOLENCE [None]
